FAERS Safety Report 14922290 (Version 1)
Quarter: 2018Q2

REPORT INFORMATION
  Report Type: Spontaneous
  Country: US (occurrence: US)
  Receive Date: 20180522
  Receipt Date: 20180522
  Transmission Date: 20180711
  Serious: No
  Sender: FDA-Public Use
  Company Number: US-ASTRAZENECA-2018SE65680

PATIENT
  Sex: Male
  Weight: 94.8 kg

DRUGS (2)
  1. BYDUREON [Suspect]
     Active Substance: EXENATIDE
     Indication: TYPE 2 DIABETES MELLITUS
     Route: 058
     Dates: start: 2017
  2. BYDUREON BCISE [Suspect]
     Active Substance: EXENATIDE
     Indication: INSULIN-REQUIRING TYPE 2 DIABETES MELLITUS
     Dosage: ONCE A WEEK EVERY WEDNESDAY
     Route: 058
     Dates: start: 201802

REACTIONS (4)
  - Incorrect dose administered [Unknown]
  - Pain in extremity [Unknown]
  - Injection site mass [Not Recovered/Not Resolved]
  - Device malfunction [Unknown]
